FAERS Safety Report 14044248 (Version 2)
Quarter: 2017Q4

REPORT INFORMATION
  Report Type: Spontaneous
  Country: ES (occurrence: ES)
  Receive Date: 20171004
  Receipt Date: 20171017
  Transmission Date: 20180321
  Serious: Yes (Hospitalization, Other)
  Sender: FDA-Public Use
  Company Number: ES-MYLANLABS-2017M1061594

PATIENT
  Age: 40 Year
  Sex: Female

DRUGS (2)
  1. CICLOSPORIN [Suspect]
     Active Substance: CYCLOSPORINE
     Indication: DRUG REACTION WITH EOSINOPHILIA AND SYSTEMIC SYMPTOMS
     Route: 065
  2. ALLOPURINOL. [Suspect]
     Active Substance: ALLOPURINOL
     Indication: PULMONARY TUBERCULOSIS
     Route: 065

REACTIONS (4)
  - Pneumonitis [Unknown]
  - Pneumocystis jirovecii infection [Unknown]
  - Drug reaction with eosinophilia and systemic symptoms [Unknown]
  - Pulmonary fibrosis [Unknown]
